FAERS Safety Report 13851723 (Version 1)
Quarter: 2017Q3

REPORT INFORMATION
  Report Type: Spontaneous
  Country: CN (occurrence: CN)
  Receive Date: 20170810
  Receipt Date: 20170810
  Transmission Date: 20171127
  Serious: Yes (Death)
  Sender: FDA-Public Use
  Company Number: CN-ROCHE-1973845

PATIENT
  Age: 56 Year
  Sex: Male

DRUGS (16)
  1. PROSTACYCLIN [Concomitant]
     Active Substance: EPOPROSTENOL
     Dosage: DAY 38-43
     Route: 065
  2. IMIPENEM/CILASTATIN SODIUM [Concomitant]
     Active Substance: CILASTATIN SODIUM\IMIPENEM
     Dosage: DAY 43
     Route: 065
  3. CEFOPERAZONE SODIUM/SULBACTAM SODIUM [Concomitant]
     Active Substance: CEFOPERAZONE SODIUM\SULBACTAM SODIUM
     Dosage: DAY 38-43; 2:1
     Route: 065
  4. PROSTACYCLIN [Concomitant]
     Active Substance: EPOPROSTENOL
     Dosage: DAY 36-38
     Route: 065
  5. OSELTAMIVIR [Suspect]
     Active Substance: OSELTAMIVIR
     Dosage: DAY 10-31
     Route: 065
     Dates: start: 20170116, end: 20170206
  6. IMIPENEM/CILASTATIN SODIUM [Concomitant]
     Active Substance: CILASTATIN SODIUM\IMIPENEM
     Dosage: DAY 12-18
     Route: 065
  7. OSELTAMIVIR [Suspect]
     Active Substance: OSELTAMIVIR
     Indication: AVIAN INFLUENZA
     Dosage: DAY 4-7
     Route: 065
     Dates: start: 20170110, end: 20170114
  8. CEFOPERAZONE SODIUM/SULBACTAM SODIUM [Concomitant]
     Active Substance: CEFOPERAZONE SODIUM\SULBACTAM SODIUM
     Dosage: 2: 1?DAY 7-12
     Route: 065
  9. FLUCONAZOLE. [Concomitant]
     Active Substance: FLUCONAZOLE
     Dosage: DAY 15-27
     Route: 065
  10. MEROPENEM. [Concomitant]
     Active Substance: MEROPENEM
     Dosage: DAY 18-23
     Route: 065
  11. AMIKACIN [Concomitant]
     Active Substance: AMIKACIN
     Dosage: DAY 27-37?400KU
     Route: 065
  12. PERAMIVIR [Suspect]
     Active Substance: PERAMIVIR
     Indication: AVIAN INFLUENZA
     Dosage: DAY 7-10
     Route: 065
     Dates: start: 20170113
  13. CEFOPERAZONE SODIUM/SULBACTAM SODIUM [Concomitant]
     Active Substance: CEFOPERAZONE SODIUM\SULBACTAM SODIUM
     Dosage: DAY 25-37; 2:1
     Route: 065
  14. LINEZOLID. [Concomitant]
     Active Substance: LINEZOLID
     Dosage: DAY 17-24
     Route: 065
  15. CIPROFLOXACIN. [Concomitant]
     Active Substance: CIPROFLOXACIN
     Dosage: DAY 23-27
     Route: 065
  16. CASPOFUNGIN [Concomitant]
     Active Substance: CASPOFUNGIN
     Dosage: DAY 27-43
     Route: 065

REACTIONS (2)
  - Drug resistance [Fatal]
  - Drug ineffective [Fatal]
